FAERS Safety Report 6916335-4 (Version None)
Quarter: 2010Q3

REPORT INFORMATION
  Report Type: 
  Country: None (occurrence: None)
  Receive Date: 20100810
  Receipt Date: 20100727
  Transmission Date: 20110219
  Serious: Yes (Hospitalization)
  Sender: FDA-Public Use
  Company Number: IT-RANBAXY-2010RR-36850

PATIENT
  Sex: Female

DRUGS (1)
  1. LORAZEPAM [Suspect]

REACTIONS (5)
  - FATIGUE [None]
  - HYPOTENSION [None]
  - PALPITATIONS [None]
  - SOMNOLENCE [None]
  - SYNCOPE [None]
